FAERS Safety Report 7142374-7 (Version None)
Quarter: 2010Q4

REPORT INFORMATION
  Report Type: 
  Country: None (occurrence: None)
  Receive Date: 20101117
  Receipt Date: 20100909
  Transmission Date: 20110411
  Serious: No
  Sender: FDA-Public Use
  Company Number: WAES 1009USA01109

PATIENT
  Sex: Female

DRUGS (3)
  1. ISENTRESS [Suspect]
     Indication: HIV INFECTION
     Dosage: 400 MG/BID/PO
     Route: 048
  2. TRUVADA [Concomitant]
  3. MARAVIROC [Concomitant]

REACTIONS (3)
  - OFF LABEL USE [None]
  - VIRAL LOAD DECREASED [None]
  - VIRAL LOAD INCREASED [None]
